FAERS Safety Report 4446026-3 (Version None)
Quarter: 2004Q3

REPORT INFORMATION
  Report Type: 
  Country: None (occurrence: None)
  Receive Date: 20040910
  Receipt Date: 20040121
  Transmission Date: 20050211
  Serious: Yes (Hospitalization)
  Sender: FDA-Public Use
  Company Number: JP-GLAXOSMITHKLINE-B0320450A

PATIENT
  Age: 96 Year
  Sex: Female

DRUGS (4)
  1. VALTREX [Suspect]
     Indication: HERPES ZOSTER
     Dosage: 1000MG THREE TIMES PER DAY
     Route: 048
     Dates: start: 20040113, end: 20040116
  2. SIOSNAL [Concomitant]
     Indication: HERPES ZOSTER
     Route: 061
     Dates: start: 20040113
  3. VOLTAREN [Concomitant]
     Indication: NEURALGIA
     Dosage: 3U PER DAY
     Route: 048
     Dates: start: 20040115
  4. MARZULENE S [Concomitant]
     Dosage: 2.01G PER DAY
     Route: 048
     Dates: start: 20040115

REACTIONS (4)
  - CONFUSIONAL STATE [None]
  - HALLUCINATION, AUDITORY [None]
  - HALLUCINATION, VISUAL [None]
  - SCREAMING [None]
